FAERS Safety Report 12660543 (Version 1)
Quarter: 2016Q3

REPORT INFORMATION
  Report Type: Spontaneous
  Country: US (occurrence: US)
  Receive Date: 20160817
  Receipt Date: 20160817
  Transmission Date: 20161109
  Serious: No
  Sender: FDA-Public Use
  Company Number: US-GLAXOSMITHKLINE-US2016112977

PATIENT
  Sex: Male

DRUGS (1)
  1. LAMICTAL [Suspect]
     Active Substance: LAMOTRIGINE
     Indication: ONYCHOMYCOSIS
     Dates: start: 201607

REACTIONS (4)
  - Wrong drug administered [Unknown]
  - Drug dispensing error [Unknown]
  - Off label use [Unknown]
  - Drug prescribing error [Unknown]
